FAERS Safety Report 25628352 (Version 1)
Quarter: 2025Q3

REPORT INFORMATION
  Report Type: Report from Study
  Country: CO (occurrence: CO)
  Receive Date: 20250731
  Receipt Date: 20250731
  Transmission Date: 20251021
  Serious: Yes (Hospitalization)
  Sender: PUMA
  Company Number: CO-OEPI8P-1601

PATIENT
  Age: 67 Year
  Sex: Female
  Weight: 77 kg

DRUGS (4)
  1. NERLYNX [Suspect]
     Active Substance: NERATINIB
     Indication: Invasive ductal breast carcinoma
     Dosage: 240 MG, DAILY
     Route: 048
     Dates: start: 20200320, end: 20250718
  2. CAPECITABINE [Concomitant]
     Active Substance: CAPECITABINE
     Indication: Breast cancer
     Dosage: 500 MG EACH 12 H
     Route: 048
     Dates: start: 20240123, end: 20250718
  3. ONDANSETRON [Concomitant]
     Active Substance: ONDANSETRON
     Indication: Vomiting
     Dosage: 8 MG EACH 12 H
     Route: 048
     Dates: start: 20230317, end: 20250718
  4. ANASTROZOLE [Concomitant]
     Active Substance: ANASTROZOLE
     Indication: Breast cancer
     Dosage: 1 MG EACH 24 H
     Route: 048
     Dates: start: 20240514, end: 20250718

REACTIONS (2)
  - Electrolyte imbalance [Recovering/Resolving]
  - Diarrhoea [Recovering/Resolving]

NARRATIVE: CASE EVENT DATE: 20250718
